FAERS Safety Report 21879749 (Version 1)
Quarter: 2023Q1

REPORT INFORMATION
  Report Type: Spontaneous
  Country: US (occurrence: US)
  Receive Date: 20230118
  Receipt Date: 20230118
  Transmission Date: 20230418
  Serious: Yes (Death)
  Sender: FDA-Public Use
  Company Number: US-Fresenius Medical Care Renal Therapies Group-FMC-2301-000040

PATIENT
  Age: 42 Year
  Sex: Male
  Weight: 88 kg

DRUGS (3)
  1. DELFLEX WITH DEXTROSE 1.5% LOW MAGNESIUM LOW CALCIUM [Suspect]
     Active Substance: CALCIUM CHLORIDE\DEXTROSE\MAGNESIUM CHLORIDE\SODIUM CHLORIDE\SODIUM LACTATE
     Indication: End stage renal disease
     Dosage: (TIDAL) 1.5%, 2.5%, 4.25% DEXTROSE SOLUTIONS, EXCHANGE # 1 2100 ML, EXCHANGES # 2-5 2300ML, DWELL T
     Route: 033
  2. DELFLEX WITH DEXTROSE 2.5% LOW MAGNESIUM LOW CALCIUM [Suspect]
     Active Substance: CALCIUM CHLORIDE\DEXTROSE\MAGNESIUM CHLORIDE\SODIUM CHLORIDE\SODIUM LACTATE
     Indication: End stage renal disease
     Dosage: (TIDAL) 1.5%, 2.5%, 4.25% DEXTROSE SOLUTIONS, EXCHANGE # 1 2100 ML, EXCHANGES # 2-5 2300ML, DWELL TI
     Route: 033
  3. DELFLEX WITH DEXTROSE 4.25% LOW MAGNESIUM LOW CALCIUM [Suspect]
     Active Substance: CALCIUM CHLORIDE\DEXTROSE\MAGNESIUM CHLORIDE\SODIUM CHLORIDE\SODIUM LACTATE
     Indication: End stage renal disease
     Dosage: (TIDAL) 1.5%, 2.5%, 4.25% DEXTROSE SOLUTIONS, EXCHANGE # 1 2100 ML, EXCHANGES # 2-5 2300ML, DWELL TI
     Route: 033

REACTIONS (2)
  - Chronic kidney disease [Fatal]
  - Treatment noncompliance [Unknown]
